FAERS Safety Report 9403739 (Version 1)
Quarter: 2013Q3

REPORT INFORMATION
  Report Type: Spontaneous
  Country: US (occurrence: None)
  Receive Date: 20130715
  Receipt Date: 20130715
  Transmission Date: 20140515
  Serious: Yes (Other)
  Sender: FDA-Public Use
  Company Number: None

PATIENT
  Age: 87 Year
  Sex: 0
  Weight: 76.6 kg

DRUGS (1)
  1. CYANOCOBALAMIN [Suspect]
     Route: 048
     Dates: start: 20130212, end: 20130311

REACTIONS (4)
  - Hyperglycaemia [None]
  - Muscle spasms [None]
  - Dizziness [None]
  - Myalgia [None]
